FAERS Safety Report 4447826-6 (Version None)
Quarter: 2004Q3

REPORT INFORMATION
  Report Type: 
  Country: None (occurrence: None)
  Receive Date: 20040802
  Receipt Date: 20040412
  Transmission Date: 20050211
  Serious: No
  Sender: FDA-Public Use
  Company Number: 2004-115023-NL

PATIENT
  Age: 55 Year
  Sex: Female

DRUGS (6)
  1. NUVARING [Suspect]
     Indication: MENOPAUSAL SYMPTOMS
     Dosage: DF DAILY VAGINAL
     Route: 067
     Dates: start: 20040211
  2. PAXIL [Concomitant]
  3. VIT B-6 [Concomitant]
  4. VIT E [Concomitant]
  5. VIT C [Concomitant]
  6. MULTI-VITAMINS [Concomitant]

REACTIONS (1)
  - POLLAKIURIA [None]
